FAERS Safety Report 20671688 (Version 1)
Quarter: 2022Q2

REPORT INFORMATION
  Report Type: Report from Study
  Country: CA (occurrence: CA)
  Receive Date: 20220405
  Receipt Date: 20220405
  Transmission Date: 20220720
  Serious: Yes (Hospitalization, Other)
  Sender: FDA-Public Use
  Company Number: CA-VALIDUS PHARMACEUTICALS LLC-CA-VDP-2022-015309

PATIENT

DRUGS (12)
  1. ERGOCALCIFEROL [Suspect]
     Active Substance: ERGOCALCIFEROL
     Indication: Product used for unknown indication
     Dosage: UNK
     Route: 065
  2. FORMOTEROL [Suspect]
     Active Substance: FORMOTEROL
     Indication: Product used for unknown indication
     Dosage: 2 DF
     Route: 065
  3. ESCITALOPRAM OXALATE [Suspect]
     Active Substance: ESCITALOPRAM OXALATE
     Indication: Product used for unknown indication
     Dosage: 10 MG, QD
     Route: 065
  4. TIOTROPIUM BROMIDE [Suspect]
     Active Substance: TIOTROPIUM BROMIDE
     Indication: Product used for unknown indication
     Dosage: 2 DF, QD
     Route: 065
  5. DUTASTERIDE [Suspect]
     Active Substance: DUTASTERIDE
     Indication: Product used for unknown indication
     Dosage: 0.5 MG
     Route: 065
  6. DOXAZOSIN MESYLATE [Suspect]
     Active Substance: DOXAZOSIN MESYLATE
     Indication: Product used for unknown indication
     Dosage: 4 MG
     Route: 065
  7. ELIQUIS [Suspect]
     Active Substance: APIXABAN
     Indication: Product used for unknown indication
     Dosage: UNK
     Route: 065
  8. TIAZAC [Suspect]
     Active Substance: DILTIAZEM HYDROCHLORIDE
     Indication: Product used for unknown indication
     Dosage: 120 MG
     Route: 065
  9. ADVAIR HFA [Suspect]
     Active Substance: FLUTICASONE PROPIONATE\SALMETEROL XINAFOATE
     Indication: Product used for unknown indication
     Dosage: UNK
     Route: 065
  10. ALBUTEROL [Suspect]
     Active Substance: ALBUTEROL
     Indication: Product used for unknown indication
     Dosage: METERED DOSE, AEROSOL
     Route: 050
  11. DILTIAZEM [Suspect]
     Active Substance: DILTIAZEM
     Indication: Product used for unknown indication
     Dosage: UNK
     Route: 065
  12. APIXABAN [Suspect]
     Active Substance: APIXABAN
     Indication: Product used for unknown indication
     Dosage: UNK
     Route: 065

REACTIONS (21)
  - Full blood count abnormal [Unknown]
  - Arteriosclerosis coronary artery [Unknown]
  - Pulmonary embolism [Unknown]
  - Sleep disorder due to a general medical condition [Unknown]
  - Conjunctivitis allergic [Unknown]
  - Loss of personal independence in daily activities [Unknown]
  - Spirometry abnormal [Unknown]
  - Dust allergy [Unknown]
  - Nodule [Unknown]
  - Mycotic allergy [Unknown]
  - Productive cough [Unknown]
  - Hypoxia [Unknown]
  - Condition aggravated [Unknown]
  - Normochromic normocytic anaemia [Unknown]
  - Mite allergy [Unknown]
  - Arteriosclerosis [Unknown]
  - Thrombosis [Unknown]
  - Therapeutic product effect incomplete [Unknown]
  - Dyspnoea [Unknown]
  - Wheezing [Unknown]
  - Asthma [Unknown]
